FAERS Safety Report 18165279 (Version 1)
Quarter: 2020Q3

REPORT INFORMATION
  Report Type: Spontaneous
  Country: UA (occurrence: UA)
  Receive Date: 20200818
  Receipt Date: 20200818
  Transmission Date: 20201103
  Serious: Yes (Other)
  Sender: FDA-Public Use
  Company Number: NVSC2020UA216031

PATIENT
  Sex: Male

DRUGS (8)
  1. VIGAMOX [Suspect]
     Active Substance: MOXIFLOXACIN HYDROCHLORIDE
     Indication: NECROTISING RETINITIS
     Dosage: 1 DF, 6QD (INSTILLATION INTO THE RIGHT EYE)
     Route: 047
  2. DEXAMETHASONE. [Suspect]
     Active Substance: DEXAMETHASONE
     Indication: NECROTISING RETINITIS
     Dosage: UNK (UNDER THE CONJUNCTIVA)
     Route: 057
  3. GENTAMICIN. [Suspect]
     Active Substance: GENTAMICIN
     Indication: NECROTISING RETINITIS
     Route: 065
  4. DEXAMETHASONE. [Suspect]
     Active Substance: DEXAMETHASONE
     Indication: UVEITIS
  5. GENTAMICIN. [Suspect]
     Active Substance: GENTAMICIN
     Indication: UVEITIS
     Dosage: 0.3 ML
     Route: 065
  6. VIGAMOX [Suspect]
     Active Substance: MOXIFLOXACIN HYDROCHLORIDE
     Indication: UVEITIS
  7. DEXAMETHASONE. [Suspect]
     Active Substance: DEXAMETHASONE
     Indication: NECROTISING RETINITIS
     Dosage: UNK (INSTILLATION INTO THE RIGHT EYE)
     Route: 047
  8. DEXAMETHASONE. [Suspect]
     Active Substance: DEXAMETHASONE
     Indication: UVEITIS
     Dosage: 0.3 UNK, PARABULBAR
     Route: 065

REACTIONS (3)
  - Product use in unapproved indication [Unknown]
  - Visual impairment [Recovered/Resolved]
  - Drug ineffective [Recovered/Resolved]
